FAERS Safety Report 7379982-4 (Version None)
Quarter: 2011Q1

REPORT INFORMATION
  Report Type: 
  Country: None (occurrence: None)
  Receive Date: 20110329
  Receipt Date: 20110324
  Transmission Date: 20110831
  Serious: Yes (Other)
  Sender: FDA-Public Use
  Company Number: PHEH2011US00462

PATIENT
  Sex: Male

DRUGS (1)
  1. ZOMETA [Suspect]

REACTIONS (5)
  - ANXIETY [None]
  - ANHEDONIA [None]
  - INJURY [None]
  - PAIN [None]
  - OSTEONECROSIS OF JAW [None]
